FAERS Safety Report 20733045 (Version 1)
Quarter: 2022Q2

REPORT INFORMATION
  Report Type: Spontaneous
  Country: US (occurrence: US)
  Receive Date: 20220421
  Receipt Date: 20220421
  Transmission Date: 20220721
  Serious: No
  Sender: FDA-Public Use
  Company Number: US-drreddys-SPO/USA/22/0148965

PATIENT
  Age: 24 Year
  Sex: Female

DRUGS (1)
  1. ZENATANE [Suspect]
     Active Substance: ISOTRETINOIN
     Indication: Product used for unknown indication
     Dosage: RMA ISSUE DATE: 18 JANUARY 2022 06:42:04 PM, 18 FEBRUARY 2022 08:37:17 AM, 17 MARCH 2022 02:18:12 PM

REACTIONS (2)
  - Dry skin [Unknown]
  - Arthralgia [Unknown]
